FAERS Safety Report 9296668 (Version 2)
Quarter: 2013Q2

REPORT INFORMATION
  Report Type: Spontaneous
  Country: US (occurrence: US)
  Receive Date: 20130517
  Receipt Date: 20130610
  Transmission Date: 20140414
  Serious: Yes (Death, Hospitalization, Other)
  Sender: FDA-Public Use
  Company Number: US-009507513-1305USA009001

PATIENT
  Age: 85 Year
  Sex: Male

DRUGS (2)
  1. ASMANEX TWISTHALER [Suspect]
     Dosage: 220 MICROGRAM, BID
     Route: 055
     Dates: start: 2009
  2. FORADIL [Suspect]
     Dosage: ONE INHALATION TWICE DAILY
     Route: 055
     Dates: start: 2009

REACTIONS (4)
  - Hepatic cancer [Unknown]
  - Jaundice [Unknown]
  - Pneumonia [Unknown]
  - Death [Fatal]
